FAERS Safety Report 13881974 (Version 1)
Quarter: 2017Q3

REPORT INFORMATION
  Report Type: Spontaneous
  Country: RU (occurrence: RU)
  Receive Date: 20170818
  Receipt Date: 20170818
  Transmission Date: 20171127
  Serious: Yes (Life-Threatening, Other)
  Sender: FDA-Public Use
  Company Number: RU-ASTRAZENECA-2017SE82684

PATIENT
  Age: 57 Year
  Sex: Male
  Weight: 67 kg

DRUGS (2)
  1. BRILINTA [Suspect]
     Active Substance: TICAGRELOR
     Indication: ACUTE CORONARY SYNDROME
     Dosage: 270.0MG ONCE/SINGLE ADMINISTRATION
     Route: 048
     Dates: start: 20170804, end: 20170804
  2. BRILINTA [Suspect]
     Active Substance: TICAGRELOR
     Indication: ACUTE CORONARY SYNDROME
     Dosage: 270.0MG ONCE/SINGLE ADMINISTRATION
     Route: 048
     Dates: start: 20170731, end: 20170731

REACTIONS (2)
  - Overdose [Recovered/Resolved]
  - Haemorrhagic stroke [Recovered/Resolved]

NARRATIVE: CASE EVENT DATE: 20170804
